FAERS Safety Report 25465661 (Version 1)
Quarter: 2025Q2

REPORT INFORMATION
  Report Type: Spontaneous
  Country: US (occurrence: US)
  Receive Date: 20250623
  Receipt Date: 20250623
  Transmission Date: 20250717
  Serious: Yes (Hospitalization, Other)
  Sender: BRISTOL-MYERS SQUIBB COMPANY
  Company Number: US-BRISTOL-MYERS SQUIBB COMPANY-2025-088205

PATIENT
  Age: 79 Year
  Sex: Male

DRUGS (3)
  1. POMALYST [Suspect]
     Active Substance: POMALIDOMIDE
     Indication: Plasma cell myeloma
     Dosage: TAKE 1 CAPSULE BY MOUTH 1 TIME A DAY FOR 21 DAYS ON THEN 7 DAYS OFF, THEN REPEAT
     Route: 048
     Dates: start: 202505
  2. POMALYST [Suspect]
     Active Substance: POMALIDOMIDE
     Indication: Metastasis
  3. LENALIDOMIDE [Concomitant]
     Active Substance: LENALIDOMIDE
     Indication: Product used for unknown indication

REACTIONS (4)
  - Syncope [Unknown]
  - Diarrhoea [Unknown]
  - Blood pressure fluctuation [Unknown]
  - Lethargy [Unknown]

NARRATIVE: CASE EVENT DATE: 20250401
